FAERS Safety Report 17579227 (Version 1)
Quarter: 2020Q1

REPORT INFORMATION
  Report Type: Spontaneous
  Country: FR (occurrence: FR)
  Receive Date: 20200325
  Receipt Date: 20200325
  Transmission Date: 20200409
  Serious: Yes (Other)
  Sender: FDA-Public Use
  Company Number: FR-UNITED THERAPEUTICS-UNT-2020-004258

PATIENT

DRUGS (7)
  1. NITRIC OXIDE. [Concomitant]
     Active Substance: NITRIC OXIDE
     Indication: PRODUCT USED FOR UNKNOWN INDICATION
     Dosage: UNK
  2. REMODULIN [Suspect]
     Active Substance: TREPROSTINIL
     Indication: PULMONARY HYPERTENSION
     Dosage: UNK, CONTINUING (MAXIMUM TOLERATED DOSE OF 0.009 ?G/KG)
     Route: 058
  3. SILDENAFIL. [Concomitant]
     Active Substance: SILDENAFIL
     Dosage: 2 MG/KG, QID
     Route: 048
  4. SILDENAFIL. [Concomitant]
     Active Substance: SILDENAFIL
     Indication: PRODUCT USED FOR UNKNOWN INDICATION
     Dosage: 1 MG/KG, TID
     Route: 048
  5. EPINEPHRINE. [Concomitant]
     Active Substance: EPINEPHRINE
     Indication: PRODUCT USED FOR UNKNOWN INDICATION
     Dosage: UNK
     Route: 065
  6. REMODULIN [Suspect]
     Active Substance: TREPROSTINIL
     Dosage: 0.009 ?G/KG, CONTINUING
     Route: 058
  7. BOSENTAN. [Concomitant]
     Active Substance: BOSENTAN
     Indication: PRODUCT USED FOR UNKNOWN INDICATION
     Dosage: 32 MG, BID
     Route: 048

REACTIONS (4)
  - Infusion site pain [Unknown]
  - Pulmonary hypertension [Unknown]
  - Acute respiratory distress syndrome [Unknown]
  - Bronchitis viral [Unknown]
